FAERS Safety Report 18366529 (Version 3)
Quarter: 2020Q4

REPORT INFORMATION
  Report Type: Spontaneous
  Country: US (occurrence: US)
  Receive Date: 20201009
  Receipt Date: 20201019
  Transmission Date: 20210114
  Serious: Yes (Other)
  Sender: FDA-Public Use
  Company Number: US-PFIZER INC-2020293134

PATIENT
  Age: 56 Year
  Sex: Female
  Weight: 68.04 kg

DRUGS (3)
  1. PREMARIN [Suspect]
     Active Substance: ESTROGENS, CONJUGATED
     Dosage: 1 APPLICATOR, 3 NIGHTS A WEEK
     Route: 067
  2. PREMARIN [Suspect]
     Active Substance: ESTROGENS, CONJUGATED
     Dosage: 0.625 MG/G, AS NEEDED (AS NEEDED ONCE OR TWICE A MONTH VAGINAL)
     Route: 067
  3. PREMARIN [Suspect]
     Active Substance: ESTROGENS, CONJUGATED
     Dosage: 1 APPLICATORFUL, 3 NIGHTS A WEEK, EVERY AN HOUR BEFORE BED (HS)
     Route: 067

REACTIONS (4)
  - Off label use [Unknown]
  - Road traffic accident [Recovering/Resolving]
  - Thrombosis [Not Recovered/Not Resolved]
  - Expired product administered [Unknown]

NARRATIVE: CASE EVENT DATE: 20200111
